FAERS Safety Report 9384123 (Version 2)
Quarter: 2013Q3

REPORT INFORMATION
  Report Type: Spontaneous
  Country: BR (occurrence: BR)
  Receive Date: 20130705
  Receipt Date: 20130909
  Transmission Date: 20140515
  Serious: Yes (Death, Life-Threatening, Hospitalization)
  Sender: FDA-Public Use
  Company Number: BR-ASTRAZENECA-2013SE50176

PATIENT
  Age: 79 Year
  Sex: Male
  Weight: 80 kg

DRUGS (6)
  1. SEROQUEL XRO [Suspect]
     Route: 048
     Dates: start: 20130525, end: 20130526
  2. UNSPECIFIED ANTIBIOTIC [Concomitant]
     Indication: BRONCHOPNEUMONIA
  3. CAPTOPRIL [Concomitant]
  4. RISPERIDONE [Concomitant]
  5. UNSPECIFIED MEDICATION [Concomitant]
     Indication: GLUCOSE TOLERANCE IMPAIRED
  6. ALBUMIN [Concomitant]
     Dosage: 36 BOTLES
     Dates: start: 2013

REACTIONS (12)
  - Haemorrhage [Unknown]
  - Sepsis [Fatal]
  - Mouth injury [Unknown]
  - Aphasia [Unknown]
  - Walking disability [Unknown]
  - Oxygen saturation decreased [Not Recovered/Not Resolved]
  - Hypersomnia [Not Recovered/Not Resolved]
  - Hypotension [Not Recovered/Not Resolved]
  - Blood glucose increased [Not Recovered/Not Resolved]
  - Heart rate decreased [Unknown]
  - Infection [Unknown]
  - Off label use [Recovered/Resolved]
